FAERS Safety Report 7490266 (Version 4)
Quarter: 2013Q1

REPORT INFORMATION
  Report Type: Report from Study
  Country: ES (occurrence: ES)
  Receive Date: 20100720
  Receipt Date: 20130128
  Transmission Date: 20140127
  Serious: Yes (Death, Other)
  Sender: FDA-Public Use
  Company Number: ES-CELGENEUS-144-21880-10070658

PATIENT
  Sex: 0

DRUGS (4)
  1. REVLIMID [Suspect]
     Indication: PLASMA CELL MYELOMA
     Dosage: 25 MILLIGRAM
     Route: 048
  2. REVLIMID [Suspect]
     Dosage: 10 MILLIGRAM
     Route: 048
  3. REVLIMID [Suspect]
     Dosage: 15 MILLIGRAM
     Route: 048
  4. DEXAMETHASONE [Suspect]
     Indication: PLASMA CELL MYELOMA
     Dosage: 20 MILLIGRAM
     Route: 065

REACTIONS (18)
  - Sudden death [Fatal]
  - Respiratory tract infection [Fatal]
  - Surgery [Fatal]
  - Toxicity to various agents [Fatal]
  - Plasma cell myeloma [Fatal]
  - Glaucoma [Unknown]
  - Delirium [Unknown]
  - Gastrointestinal haemorrhage [Unknown]
  - Deep vein thrombosis [Unknown]
  - Infection [Unknown]
  - Drug intolerance [Unknown]
  - Anaemia [Unknown]
  - Asthenia [Unknown]
  - Diarrhoea [Unknown]
  - Rash [Unknown]
  - Thrombocytopenia [Unknown]
  - Constipation [Unknown]
  - Neutropenia [Unknown]
